FAERS Safety Report 10171020 (Version 1)
Quarter: 2014Q2

REPORT INFORMATION
  Report Type: Report from Study
  Country: CN (occurrence: CN)
  Receive Date: 20140514
  Receipt Date: 20140514
  Transmission Date: 20141212
  Serious: Yes (Death)
  Sender: FDA-Public Use
  Company Number: CN-ASTELLAS-2014JP003996

PATIENT
  Age: 64 Year
  Sex: Female
  Weight: 56 kg

DRUGS (4)
  1. MICAFUNGIN [Suspect]
     Dates: start: 20140412, end: 20140413
  2. VINCRISTINE [Concomitant]
     Indication: PLASMA CELL MYELOMA
     Dosage: 0.5 MG, UNKNOWN FREQ.
     Route: 042
     Dates: start: 20140401, end: 20140413
  3. PIRARUBICIN HYDROCHLORIDE [Concomitant]
     Indication: PLASMA CELL MYELOMA
     Route: 042
     Dates: start: 20140401, end: 20140413
  4. DEXAMETHASONE [Concomitant]
     Indication: PLASMA CELL MYELOMA
     Route: 042
     Dates: start: 20140401, end: 20140413

REACTIONS (1)
  - Death [Fatal]
